FAERS Safety Report 20602289 (Version 7)
Quarter: 2022Q2

REPORT INFORMATION
  Report Type: Report from Study
  Country: JP (occurrence: JP)
  Receive Date: 20220316
  Receipt Date: 20220627
  Transmission Date: 20220720
  Serious: Yes (Death, Life-Threatening, Other)
  Sender: FDA-Public Use
  Company Number: JP-ASTELLAS-2022JP004300

PATIENT
  Age: 65 Year
  Sex: Male
  Weight: 50.4 kg

DRUGS (2)
  1. ENFORTUMAB VEDOTIN [Suspect]
     Active Substance: ENFORTUMAB VEDOTIN
     Indication: Transitional cell carcinoma
     Route: 041
     Dates: start: 20220214, end: 20220214
  2. PEMBROLIZUMAB [Concomitant]
     Active Substance: PEMBROLIZUMAB
     Indication: Transitional cell carcinoma
     Dosage: UNK UNK, UNKNOWN FREQ.
     Route: 065
     Dates: start: 20211122, end: 20220125

REACTIONS (3)
  - Gastrointestinal perforation [Recovering/Resolving]
  - Intestinal perforation [Fatal]
  - Transitional cell carcinoma [Fatal]

NARRATIVE: CASE EVENT DATE: 20220219
